FAERS Safety Report 17659819 (Version 2)
Quarter: 2020Q2

REPORT INFORMATION
  Report Type: Spontaneous
  Country: US (occurrence: US)
  Receive Date: 20200413
  Receipt Date: 20200526
  Transmission Date: 20200713
  Serious: No
  Sender: FDA-Public Use
  Company Number: US-AMGEN-USASP2020057960

PATIENT
  Age: 34 Year
  Sex: Female
  Weight: 90.3 kg

DRUGS (1)
  1. NEULASTA [Suspect]
     Active Substance: PEGFILGRASTIM
     Indication: PROPHYLAXIS
     Dosage: UNK UNK, AFTER CHEMO
     Route: 065

REACTIONS (2)
  - Drain placement [Unknown]
  - Device use error [Unknown]

NARRATIVE: CASE EVENT DATE: 20200407
